FAERS Safety Report 6767422-5 (Version None)
Quarter: 2010Q2

REPORT INFORMATION
  Report Type: 
  Country: None (occurrence: None)
  Receive Date: 20100611
  Receipt Date: 20100611
  Transmission Date: 20101027
  Serious: Yes (Hospitalization)
  Sender: FDA-Public Use
  Company Number: None

PATIENT
  Sex: Male
  Weight: 57.3 kg

DRUGS (4)
  1. DASATINIB [Suspect]
     Indication: LUNG NEOPLASM MALIGNANT
     Dosage: 70 MG DAILY PO
     Route: 048
     Dates: start: 20100409, end: 20100519
  2. TAXOL [Suspect]
     Indication: LUNG NEOPLASM MALIGNANT
     Dosage: 50 MG/M2 WEEKLY IV
     Route: 042
     Dates: start: 20100409, end: 20100514
  3. CARBOPLATIN [Suspect]
     Indication: LUNG NEOPLASM MALIGNANT
     Dosage: AUC 2 WEEKLY IV
     Route: 042
     Dates: start: 20100409, end: 20100519
  4. RADIATION -EXTERNAL BEAM [Suspect]
     Indication: LUNG NEOPLASM MALIGNANT
     Dosage: 45 GY
     Dates: start: 20100409, end: 20100519

REACTIONS (2)
  - PAIN [None]
  - RADIATION OESOPHAGITIS [None]
